FAERS Safety Report 9223297 (Version 1)
Quarter: 2013Q2

REPORT INFORMATION
  Report Type: Spontaneous
  Country: IT (occurrence: IT)
  Receive Date: 20130410
  Receipt Date: 20130410
  Transmission Date: 20140414
  Serious: Yes (Other)
  Sender: FDA-Public Use
  Company Number: IT-BAXTER-2013BAX012864

PATIENT
  Age: 67 Year
  Sex: Female
  Weight: 64 kg

DRUGS (5)
  1. ENDOXAN BAXTER [Suspect]
     Indication: BREAST CANCER
     Route: 042
     Dates: start: 20130115, end: 20130226
  2. DOCETAXEL [Suspect]
     Indication: BREAST CANCER
     Route: 042
     Dates: start: 20130115, end: 20130226
  3. TRIMETON [Concomitant]
     Indication: BREAST CANCER
     Route: 042
     Dates: start: 20130115, end: 20130226
  4. NAVOBAN [Concomitant]
     Indication: BREAST CANCER
     Route: 042
     Dates: start: 20130115, end: 20130226
  5. SOLDESAM [Concomitant]
     Indication: BREAST CANCER
     Route: 042
     Dates: start: 20130115, end: 20130226

REACTIONS (4)
  - Asthenia [Recovering/Resolving]
  - Constipation [Recovering/Resolving]
  - Dyspnoea [Recovering/Resolving]
  - Epistaxis [Recovering/Resolving]
